FAERS Safety Report 19600041 (Version 1)
Quarter: 2021Q3

REPORT INFORMATION
  Report Type: Spontaneous
  Country: CN (occurrence: CN)
  Receive Date: 20210722
  Receipt Date: 20210722
  Transmission Date: 20211014
  Serious: Yes (Other)
  Sender: FDA-Public Use
  Company Number: CN-PFIZER INC-2021872642

PATIENT
  Age: 56 Year
  Sex: Female

DRUGS (2)
  1. ANZATAX (PACLITAXEL) [Suspect]
     Active Substance: PACLITAXEL
     Indication: OVARIAN CANCER
     Dosage: 270 MG, 1X/DAY
     Route: 041
     Dates: start: 20210617, end: 20210617
  2. BO BEI [Concomitant]
     Active Substance: CARBOPLATIN
     Indication: OVARIAN CANCER
     Dosage: 600 MG, 1X/DAY
     Route: 041
     Dates: start: 20210617, end: 20210617

REACTIONS (5)
  - Tachypnoea [Recovering/Resolving]
  - Oxygen saturation decreased [Recovering/Resolving]
  - Nausea [Recovering/Resolving]
  - Vomiting [Recovering/Resolving]
  - Discomfort [Recovering/Resolving]

NARRATIVE: CASE EVENT DATE: 20210617
